FAERS Safety Report 5928906-2 (Version None)
Quarter: 2008Q3

REPORT INFORMATION
  Report Type: 
  Country: None (occurrence: None)
  Receive Date: 20080924
  Receipt Date: 20080317
  Transmission Date: 20090109
  Serious: Yes (Other)
  Sender: FDA-Public Use
  Company Number: 2008030025

PATIENT
  Age: 13 Year
  Sex: Male
  Weight: 43.0917 kg

DRUGS (2)
  1. FELBATOL [Suspect]
     Indication: EPILEPSY
     Dosage: (3300 MG,1200 MG AM + 900 MG MIDDAY + 1200 MG PM),ORAL
     Route: 048
     Dates: start: 20070701
  2. PHENOBARBITAL TAB [Concomitant]

REACTIONS (5)
  - DECREASED APPETITE [None]
  - NAUSEA [None]
  - NEUTROPENIA [None]
  - PLATELET COUNT DECREASED [None]
  - WEIGHT DECREASED [None]
